FAERS Safety Report 5229073-3 (Version None)
Quarter: 2007Q1

REPORT INFORMATION
  Report Type: 
  Country: None (occurrence: None)
  Receive Date: 20061201
  Receipt Date: 20060808
  Transmission Date: 20070707
  Serious: No
  Sender: FDA-Public Use
  Company Number: US200608002973

PATIENT
  Sex: Male

DRUGS (1)
  1. CYMBALTA [Suspect]
     Dosage: 60 MG

REACTIONS (2)
  - BLISTER [None]
  - SKIN IRRITATION [None]
